FAERS Safety Report 7418369-2 (Version None)
Quarter: 2011Q2

REPORT INFORMATION
  Report Type: 
  Country: None (occurrence: None)
  Receive Date: 20110415
  Receipt Date: 20110407
  Transmission Date: 20111010
  Serious: Yes (Hospitalization)
  Sender: FDA-Public Use
  Company Number: B0710965A

PATIENT
  Sex: Male
  Weight: 90 kg

DRUGS (5)
  1. MADOPAR [Concomitant]
     Indication: PARKINSON'S DISEASE
     Dosage: 200MG THREE TIMES PER DAY
     Route: 048
  2. TAMIFLU [Concomitant]
     Dosage: 150MG PER DAY
     Dates: start: 20110311, end: 20110312
  3. ASPIRIN [Concomitant]
     Dosage: 100MG PER DAY
     Route: 048
  4. NEXIUM [Concomitant]
     Indication: PROPHYLAXIS
     Dosage: 20MG PER DAY
     Route: 048
     Dates: start: 20110312
  5. ZANAMIVIR [Suspect]
     Route: 042
     Dates: start: 20110312

REACTIONS (1)
  - NEUTROPENIA [None]
